FAERS Safety Report 5604179-5 (Version None)
Quarter: 2008Q1

REPORT INFORMATION
  Report Type: 
  Country: None (occurrence: None)
  Receive Date: 20080128
  Receipt Date: 20080117
  Transmission Date: 20080703
  Serious: Yes (Hospitalization)
  Sender: FDA-Public Use
  Company Number: US-TEVA-158358USA

PATIENT
  Sex: Male
  Weight: 93.4 kg

DRUGS (17)
  1. FLUOROURACIL [Suspect]
     Indication: COLON CANCER
     Dosage: DAY 1-3; INTERVAL
     Route: 042
     Dates: start: 20061108
  2. FOLINIC ACID [Suspect]
     Indication: COLON CANCER
     Dosage: DAY 1-3 INTERVAL
     Route: 042
     Dates: start: 20061108
  3. OXALIPLATIN [Suspect]
     Indication: COLON CANCER
     Dosage: DAY 1-3 INTERVAL
     Route: 042
     Dates: start: 20061108
  4. AG-013, 736 [Suspect]
     Indication: COLON CANCER
     Route: 048
     Dates: start: 20061110, end: 20070307
  5. METFORMIN HCL [Concomitant]
     Route: 048
     Dates: start: 20060718
  6. DYAZIDE [Concomitant]
     Dosage: 1 TAB/DAY
     Route: 048
     Dates: start: 20060718, end: 20061212
  7. PROCHLORPERAZINE EDISYLATE [Concomitant]
     Route: 048
     Dates: start: 20061110, end: 20070301
  8. TEMAZEPAM [Concomitant]
     Route: 048
     Dates: start: 20061203, end: 20070201
  9. SENNA ALEXANDRINA [Concomitant]
     Route: 048
     Dates: start: 20061110, end: 20070126
  10. VICODIN [Concomitant]
     Route: 048
     Dates: start: 20061114, end: 20070126
  11. LISINOPRIL [Concomitant]
     Route: 048
     Dates: start: 20061220, end: 20070103
  12. EPOGEN [Concomitant]
     Dosage: 40 K AS NEEDED
     Route: 058
     Dates: start: 20061115
  13. DIPHENHYDRAMINE HYDROCHLORIDE [Concomitant]
     Route: 042
     Dates: start: 20061108
  14. DOLASETRON MESILATE [Concomitant]
     Route: 042
     Dates: start: 20061108
  15. DEXAMETHASONE SODIUM PHOSPHATE [Concomitant]
     Route: 042
     Dates: start: 20061108
  16. CALCIUM GLUCONATE [Concomitant]
     Route: 042
     Dates: start: 20061108
  17. MAGNESIUM SULFATE [Concomitant]
     Route: 042
     Dates: start: 20061108

REACTIONS (1)
  - ABDOMINAL DISCOMFORT [None]
